FAERS Safety Report 10427235 (Version 1)
Quarter: 2014Q3

REPORT INFORMATION
  Report Type: Spontaneous
  Country: US (occurrence: None)
  Receive Date: 20140902
  Receipt Date: 20140902
  Transmission Date: 20150326
  Serious: Yes (Other)
  Sender: FDA-Public Use
  Company Number: None

PATIENT
  Age: 89 Year
  Sex: Female
  Weight: 79.38 kg

DRUGS (1)
  1. AMLODIPINE [Suspect]
     Active Substance: AMLODIPINE BESYLATE
     Indication: HYPERTENSION
     Route: 048
     Dates: start: 20140829, end: 20140829

REACTIONS (7)
  - Product substitution issue [None]
  - Heart rate irregular [None]
  - Blood pressure increased [None]
  - Product quality issue [None]
  - Heart rate increased [None]
  - Fear [None]
  - Dizziness [None]

NARRATIVE: CASE EVENT DATE: 20140829
